FAERS Safety Report 8860319 (Version 1)
Quarter: 2012Q4

REPORT INFORMATION
  Report Type: 
  Country: US (occurrence: US)
  Receive Date: 20121025
  Receipt Date: 20121025
  Transmission Date: 20130627
  Serious: No
  Sender: FDA-Public Use
  Company Number: US-PFIZER INC-2012267003

PATIENT
  Age: 42 Year
  Sex: Male
  Weight: 97.05 kg

DRUGS (4)
  1. CHANTIX [Suspect]
     Indication: SMOKING CESSATION THERAPY
     Dosage: UNK
     Dates: start: 20121005, end: 201210
  2. CHANTIX [Suspect]
     Dosage: 1 mg, 2x/day
     Dates: start: 201210
  3. SYNTHROID [Concomitant]
     Dosage: UNK
  4. ATIVAN [Concomitant]
     Dosage: UNK

REACTIONS (2)
  - Hypertension [Unknown]
  - Tobacco user [Unknown]
